FAERS Safety Report 8878973 (Version 1)
Quarter: 2012Q4

REPORT INFORMATION
  Report Type: 
  Country: US (occurrence: US)
  Receive Date: 20121026
  Receipt Date: 20121026
  Transmission Date: 20130627
  Serious: Yes (Hospitalization)
  Sender: FDA-Public Use
  Company Number: US-BRISTOL-MYERS SQUIBB COMPANY-17001033

PATIENT
  Age: 51 Year
  Sex: Male

DRUGS (2)
  1. SUSTIVA [Suspect]
     Indication: ACQUIRED IMMUNODEFICIENCY SYNDROME
  2. SUSTIVA [Suspect]
     Indication: HIV INFECTION

REACTIONS (1)
  - Tuberculosis [Unknown]
